FAERS Safety Report 25643007 (Version 3)
Quarter: 2025Q3

REPORT INFORMATION
  Report Type: Report from Study
  Country: US (occurrence: US)
  Receive Date: 20250805
  Receipt Date: 20250829
  Transmission Date: 20251021
  Serious: Yes (Death, Other)
  Sender: JOHNSON AND JOHNSON
  Company Number: US-JNJFOC-20250739065

PATIENT

DRUGS (2)
  1. TALQUETAMAB [Suspect]
     Active Substance: TALQUETAMAB
     Indication: Plasma cell myeloma refractory
     Route: 065
  2. TECLISTAMAB [Suspect]
     Active Substance: TECLISTAMAB
     Indication: Plasma cell myeloma refractory
     Route: 065

REACTIONS (25)
  - Neurotoxicity [Fatal]
  - Immune effector cell-associated neurotoxicity syndrome [Unknown]
  - Neuropathy peripheral [Unknown]
  - Depressed level of consciousness [Unknown]
  - Seizure [Unknown]
  - Cerebrovascular accident [Unknown]
  - Syncope [Unknown]
  - Guillain-Barre syndrome [Unknown]
  - Cranial nerve paralysis [Unknown]
  - Encephalopathy [Unknown]
  - Loss of consciousness [Unknown]
  - Altered state of consciousness [Unknown]
  - Facial paralysis [Unknown]
  - Taste disorder [Unknown]
  - Dizziness [Unknown]
  - Headache [Unknown]
  - Disturbance in attention [Unknown]
  - Tremor [Unknown]
  - Cognitive disorder [Unknown]
  - Restless legs syndrome [Unknown]
  - Paraesthesia [Unknown]
  - Anosmia [Unknown]
  - Somnolence [Unknown]
  - Lethargy [Unknown]
  - Parosmia [Unknown]
